FAERS Safety Report 21000168 (Version 1)
Quarter: 2022Q2

REPORT INFORMATION
  Report Type: Spontaneous
  Country: FR (occurrence: FR)
  Receive Date: 20220623
  Receipt Date: 20220623
  Transmission Date: 20220721
  Serious: Yes (Congenital Anomaly)
  Sender: FDA-Public Use
  Company Number: None

PATIENT
  Age: 0 Day
  Sex: Female

DRUGS (3)
  1. QUETIAPINE [Suspect]
     Active Substance: QUETIAPINE
     Indication: Bipolar disorder
     Dosage: UNIT DOSE : 300 G , DURATION : 2 MONTHS , FREQUENCY TIME : 1 DAY
     Route: 064
     Dates: start: 202202, end: 20220427
  2. TERALITHE [Suspect]
     Active Substance: LITHIUM CARBONATE
     Indication: Bipolar disorder
     Dosage: PROLONGED-RELEASE SCORED TABLET , STRENGTH : 400 MG , UNIT DOSE : 1.4 G , FREQUENCY TIME : 1 DAY , D
     Route: 064
     Dates: start: 20210813, end: 20220427
  3. OXAZEPAM [Suspect]
     Active Substance: OXAZEPAM
     Indication: Bipolar disorder
     Dosage: 20 GRAM DAILY; 10 MG TWICE A DAY , UNIT DOSE : 20 G , DURATION : 1 YEAR , FREQUENCY TIME : 1 DAY
     Route: 064
     Dates: start: 202102, end: 20220427

REACTIONS (1)
  - Hypotonia [Recovering/Resolving]

NARRATIVE: CASE EVENT DATE: 20220427
